FAERS Safety Report 22325206 (Version 2)
Quarter: 2023Q2

REPORT INFORMATION
  Report Type: Spontaneous
  Country: BR (occurrence: BR)
  Receive Date: 20230516
  Receipt Date: 20230606
  Transmission Date: 20230722
  Serious: Yes (Other)
  Sender: FDA-Public Use
  Company Number: BR-TAKEDA-2023TUS047537

PATIENT
  Sex: Male
  Weight: 22 kg

DRUGS (5)
  1. LISDEXAMFETAMINE DIMESYLATE [Suspect]
     Active Substance: LISDEXAMFETAMINE DIMESYLATE
     Indication: Disturbance in attention
     Dosage: 0.5 DOSAGE FORM, QD
     Route: 065
     Dates: start: 20230324
  2. LISDEXAMFETAMINE DIMESYLATE [Suspect]
     Active Substance: LISDEXAMFETAMINE DIMESYLATE
     Indication: Psychomotor hyperactivity
  3. Neozine [Concomitant]
  4. MELATONIN [Concomitant]
     Active Substance: MELATONIN
     Dosage: 1 MILLIGRAM
  5. RISPERIDONE [Concomitant]
     Active Substance: RISPERIDONE
     Dosage: 2 MILLIGRAM

REACTIONS (4)
  - Autism spectrum disorder [Unknown]
  - Psychomotor hyperactivity [Unknown]
  - Off label use [Unknown]
  - Incorrect dose administered [Unknown]
